FAERS Safety Report 15968025 (Version 1)
Quarter: 2019Q1

REPORT INFORMATION
  Report Type: Spontaneous
  Country: FR (occurrence: FR)
  Receive Date: 20190215
  Receipt Date: 20190215
  Transmission Date: 20190418
  Serious: Yes (Hospitalization)
  Sender: FDA-Public Use
  Company Number: FR-MYLANLABS-2019M1013677

PATIENT
  Age: 70 Year
  Sex: Male

DRUGS (12)
  1. LASILIX                            /00032601/ [Concomitant]
     Active Substance: FUROSEMIDE
  2. SMECTA [Concomitant]
     Active Substance: MONTMORILLONITE
  3. DIFFU K [Concomitant]
     Active Substance: POTASSIUM CHLORIDE
  4. LANSOPRAZOLE MYLAN [Suspect]
     Active Substance: LANSOPRAZOLE
     Indication: DUODENAL ULCER
     Dosage: 30 MILLIGRAM, QD
     Dates: start: 20180607, end: 20180708
  5. LANSOPRAZOLE MYLAN [Suspect]
     Active Substance: LANSOPRAZOLE
     Dosage: 30 MILLIGRAM, QD
     Route: 048
     Dates: start: 20180713, end: 20180719
  6. TIORFAN [Concomitant]
     Active Substance: RACECADOTRIL
  7. PARACETAMOL [Concomitant]
     Active Substance: ACETAMINOPHEN
  8. LOVENOX [Concomitant]
     Active Substance: ENOXAPARIN SODIUM
  9. XATRAL                             /00975301/ [Concomitant]
     Active Substance: ALFUZOSIN
  10. GELOPECTOSE                        /01005801/ [Concomitant]
  11. SPECIAFOLDINE [Concomitant]
     Active Substance: FOLIC ACID
  12. TRAMADOL                           /00599202/ [Concomitant]
     Active Substance: TRAMADOL

REACTIONS (4)
  - Product substitution issue [Recovered/Resolved]
  - Gastrointestinal haemorrhage [Recovered/Resolved]
  - Anaemia [Not Recovered/Not Resolved]
  - Hypotension [Recovered/Resolved]

NARRATIVE: CASE EVENT DATE: 20180719
